FAERS Safety Report 10160778 (Version 1)
Quarter: 2014Q2

REPORT INFORMATION
  Report Type: Report from Study
  Country: US (occurrence: US)
  Receive Date: 20140508
  Receipt Date: 20140508
  Transmission Date: 20141212
  Serious: Yes (Hospitalization, Other)
  Sender: FDA-Public Use
  Company Number: US-ABBVIE-14P-163-1233002-00

PATIENT
  Age: 50 Year
  Sex: Female

DRUGS (11)
  1. HUMIRA [Suspect]
     Indication: CROHN^S DISEASE
     Route: 058
     Dates: start: 201007
  2. METHOTREXATE [Suspect]
     Indication: CROHN^S DISEASE
     Dates: start: 201007
  3. AMBIEN [Concomitant]
     Indication: INSOMNIA
  4. SEROQUEL [Concomitant]
     Indication: BIPOLAR DISORDER
     Dosage: 40 MG AT NIGHT AND 25 MG DURING THE DAY AS NEEDED
  5. VALIUM [Concomitant]
     Indication: ANXIETY
  6. PERCOCET [Concomitant]
     Indication: PAIN
  7. BACLOFEN [Concomitant]
     Indication: MUSCLE SPASMS
  8. ZANAFLEX [Concomitant]
     Indication: MUSCLE SPASMS
     Dosage: AT NIGHT
  9. PHENERGAN [Concomitant]
     Indication: NAUSEA
     Dosage: EVERY 6 HOURS AS NEEDED
  10. ULTRAM [Concomitant]
     Indication: PAIN
  11. KEPPRA [Concomitant]
     Indication: CONVULSION

REACTIONS (10)
  - Intestinal obstruction [Not Recovered/Not Resolved]
  - Influenza [Not Recovered/Not Resolved]
  - Vomiting [Not Recovered/Not Resolved]
  - Diarrhoea [Not Recovered/Not Resolved]
  - Abdominal pain upper [Unknown]
  - Nausea [Unknown]
  - Pyrexia [Unknown]
  - Arthritis [Unknown]
  - Oedema peripheral [Unknown]
  - Constipation [Unknown]
